FAERS Safety Report 5750885-1 (Version None)
Quarter: 2008Q2

REPORT INFORMATION
  Report Type: 
  Country: None (occurrence: None)
  Receive Date: 20080528
  Receipt Date: 20080522
  Transmission Date: 20081010
  Serious: Yes (Hospitalization)
  Sender: FDA-Public Use
  Company Number: AU-ASTRAZENECA-2008AP03684

PATIENT
  Age: 29655 Day
  Sex: Male

DRUGS (10)
  1. NOTEN [Suspect]
     Route: 048
     Dates: start: 20060520, end: 20080421
  2. AMIODARONE [Interacting]
     Route: 048
     Dates: start: 20070901, end: 20080421
  3. AMIODARONE [Interacting]
     Route: 048
     Dates: start: 20080421
  4. COLOFAC [Concomitant]
     Dates: start: 20000101
  5. ASPIRIN [Concomitant]
     Dates: start: 20060520
  6. ESOMEPRAZOLE [Concomitant]
     Dates: start: 20070101, end: 20070101
  7. SODIUM CHLORIDE [Concomitant]
     Dates: start: 20080419, end: 20080421
  8. MOCLOBEMIDE [Concomitant]
     Dates: start: 20080201
  9. GALANTAMINE HYDROBROMIDE [Concomitant]
     Indication: COGNITIVE DISORDER
     Route: 048
     Dates: start: 20050125
  10. FOLATE [Concomitant]
     Indication: DEMENTIA
     Dates: start: 20050125

REACTIONS (3)
  - ATRIOVENTRICULAR BLOCK FIRST DEGREE [None]
  - DRUG INTERACTION [None]
  - SINUS BRADYCARDIA [None]
